FAERS Safety Report 16531217 (Version 1)
Quarter: 2019Q3

REPORT INFORMATION
  Report Type: Spontaneous
  Country: US (occurrence: US)
  Receive Date: 20190704
  Receipt Date: 20190704
  Transmission Date: 20191004
  Serious: No
  Sender: FDA-Public Use
  Company Number: US-ASTRAZENECA-2019SE86376

PATIENT
  Age: 56 Year
  Sex: Male

DRUGS (1)
  1. FASENRA [Suspect]
     Active Substance: BENRALIZUMAB
     Route: 058

REACTIONS (7)
  - Blood pressure decreased [Unknown]
  - Blood glucose decreased [Unknown]
  - Fatigue [Unknown]
  - Ocular hyperaemia [Unknown]
  - Swelling face [Unknown]
  - Dysphonia [Unknown]
  - Hypersomnia [Unknown]
